FAERS Safety Report 5545811-4 (Version None)
Quarter: 2007Q4

REPORT INFORMATION
  Report Type: 
  Country: None (occurrence: None)
  Receive Date: 20071211
  Receipt Date: 20071207
  Transmission Date: 20080405
  Serious: Yes (Other)
  Sender: FDA-Public Use
  Company Number: US-GENENTECH-245686

PATIENT
  Age: 39 Year
  Sex: Female

DRUGS (4)
  1. HERCEPTIN [Suspect]
     Indication: BREAST CANCER METASTATIC
  2. CYCLOPHOSPHAMIDE [Concomitant]
     Indication: BREAST CANCER METASTATIC
  3. METHOTREXATE [Concomitant]
     Indication: BREAST CANCER METASTATIC
  4. FLUOROURACIL [Concomitant]
     Indication: BREAST CANCER METASTATIC

REACTIONS (1)
  - LUNG CANCER METASTATIC [None]
